FAERS Safety Report 5042511-4 (Version None)
Quarter: 2006Q2

REPORT INFORMATION
  Report Type: 
  Country: None (occurrence: None)
  Receive Date: 20060627
  Receipt Date: 20060620
  Transmission Date: 20061013
  Serious: Yes (Death)
  Sender: FDA-Public Use
  Company Number: THQ2006A00512

PATIENT
  Sex: Male

DRUGS (22)
  1. LANSOPRAZOLE [Suspect]
  2. ASPIRIN [Suspect]
  3. ATORVASTATIN CALCIUM [Suspect]
  4. BECLOMETHASONE DIPROPIONATE [Suspect]
     Route: 055
  5. COMBIVENT [Suspect]
     Indication: CHRONIC OBSTRUCTIVE PULMONARY DISEASE
     Route: 055
     Dates: start: 20030617, end: 20040513
  6. DEXAMETHASONE TAB [Suspect]
  7. DILTIAZEM HCL [Suspect]
  8. DOSULEPIN [Suspect]
  9. FRUMIL [Suspect]
  10. FUROSEMIDE [Suspect]
  11. GAVISCON [Suspect]
  12. LACTULOSE [Suspect]
  13. METOCLOPRAMIDE [Suspect]
  14. NITROLINGUAL (GLYCERYL TRINITRATE) [Suspect]
  15. NOZINAN (LEVOMEPROMAZINE) [Suspect]
  16. OXYCODONE HCL [Suspect]
  17. OXYGEN [Suspect]
     Route: 055
  18. SALBUTAMOL [Suspect]
     Route: 055
  19. SPIRIVA 18 MICROGRAM INHALATION POWDER, HARD CAPSULE (TIOTROPIUM BROMI [Suspect]
     Indication: CHRONIC OBSTRUCTIVE PULMONARY DISEASE
     Dosage: 18 MCG
     Route: 055
     Dates: start: 20030617, end: 20040719
  20. SPIRONOLACTONE [Suspect]
  21. SYMBICORT (BUDESONIDE W/FORMOTEROL FUMARATE) [Suspect]
     Route: 055
  22. TEMAZEPAM [Suspect]

REACTIONS (1)
  - LUNG NEOPLASM MALIGNANT [None]
